FAERS Safety Report 15865904 (Version 3)
Quarter: 2019Q3

REPORT INFORMATION
  Report Type: Report from Study
  Country: US (occurrence: US)
  Receive Date: 20190125
  Receipt Date: 20190920
  Transmission Date: 20191004
  Serious: Yes (Hospitalization, Other)
  Sender: FDA-Public Use
  Company Number: US-ROCHE-2249258

PATIENT
  Sex: Female

DRUGS (24)
  1. CLARITINE [Concomitant]
     Active Substance: LORATADINE
     Route: 048
  2. BACLOFEN. [Concomitant]
     Active Substance: BACLOFEN
     Route: 048
  3. GABAPENTIN. [Concomitant]
     Active Substance: GABAPENTIN
     Route: 048
  4. FLUCONAZOLE. [Concomitant]
     Active Substance: FLUCONAZOLE
     Route: 048
  5. POTASSIUM CHLORIDE. [Concomitant]
     Active Substance: POTASSIUM CHLORIDE
  6. TYLENOL [Concomitant]
     Active Substance: ACETAMINOPHEN
     Route: 048
  7. ASPIRIN [ACETYLSALICYLIC ACID] [Concomitant]
     Active Substance: ASPIRIN
     Route: 048
  8. TIZANIDINE. [Concomitant]
     Active Substance: TIZANIDINE
     Route: 048
  9. DYSPORT [Concomitant]
     Active Substance: ABOBOTULINUMTOXINA
  10. EPIPEN [Concomitant]
     Active Substance: EPINEPHRINE
     Route: 030
  11. DITROPAN [Concomitant]
     Active Substance: OXYBUTYNIN CHLORIDE
     Route: 065
  12. BOTOX [Concomitant]
     Active Substance: ONABOTULINUMTOXINA
  13. CELLCEPT [Concomitant]
     Active Substance: MYCOPHENOLATE MOFETIL\MYCOPHENOLATE MOFETIL HYDROCHLORIDE
     Indication: INTERSTITIAL LUNG DISEASE
  14. LORAZEPAM. [Concomitant]
     Active Substance: LORAZEPAM
     Route: 048
  15. OCREVUS [Suspect]
     Active Substance: OCRELIZUMAB
     Route: 042
  16. FLUOXETINE [Concomitant]
     Active Substance: FLUOXETINE HYDROCHLORIDE
     Dosage: 3 CAPSULE
     Route: 048
  17. CRESTOR [Concomitant]
     Active Substance: ROSUVASTATIN CALCIUM
     Route: 048
  18. LOPERAMIDE [Concomitant]
     Active Substance: LOPERAMIDE
     Route: 048
  19. OCREVUS [Suspect]
     Active Substance: OCRELIZUMAB
     Indication: PRIMARY PROGRESSIVE MULTIPLE SCLEROSIS
     Dosage: SUBSEQUENT DOSE ON: 10/OCT/2018
     Route: 042
     Dates: start: 20181220, end: 20190116
  20. VENTOLIN HFA [Concomitant]
     Active Substance: ALBUTEROL SULFATE
     Dosage: 90 MCG/INHALTION
     Route: 011
  21. OMEPRAZOLE. [Concomitant]
     Active Substance: OMEPRAZOLE
     Route: 048
  22. MECLIZINE [Concomitant]
     Active Substance: MECLIZINE HYDROCHLORIDE
     Route: 048
  23. TIMOLOL. [Concomitant]
     Active Substance: TIMOLOL
     Route: 048
  24. MAGNESIUM [Concomitant]
     Active Substance: MAGNESIUM
     Route: 048

REACTIONS (3)
  - Influenza [Unknown]
  - Respiratory disorder [Unknown]
  - Pneumonia [Recovered/Resolved]
